FAERS Safety Report 10795328 (Version 1)
Quarter: 2015Q1

REPORT INFORMATION
  Report Type: Spontaneous
  Country: US (occurrence: US)
  Receive Date: 20150214
  Receipt Date: 20150214
  Transmission Date: 20150721
  Serious: No
  Sender: FDA-Public Use
  Company Number: US-GLAXOSMITHKLINE-A1060593A

PATIENT

DRUGS (2)
  1. ALLI [Suspect]
     Active Substance: ORLISTAT
     Indication: PROPHYLAXIS
     Route: 048
  2. ALLI [Suspect]
     Active Substance: ORLISTAT

REACTIONS (8)
  - Flatulence [Recovered/Resolved]
  - Faeces discoloured [Recovered/Resolved]
  - Drug administration error [Unknown]
  - Muscle spasms [Recovered/Resolved]
  - Treatment noncompliance [Unknown]
  - Gastrointestinal disorder [Unknown]
  - Faecal incontinence [Recovered/Resolved]
  - Product quality issue [Unknown]
